FAERS Safety Report 8094400-9 (Version None)
Quarter: 2012Q1

REPORT INFORMATION
  Report Type: 
  Country: None (occurrence: None)
  Receive Date: 20120130
  Receipt Date: 20120120
  Transmission Date: 20120608
  Serious: Yes (Life-Threatening, Hospitalization, Other)
  Sender: FDA-Public Use
  Company Number: US-BAYER-2011-001512

PATIENT
  Age: 29 Year
  Sex: Female
  Weight: 144 kg

DRUGS (9)
  1. DROSPIRENONE AND ETHINYL ESTRADIOL [Suspect]
     Dosage: UNK
     Dates: start: 20070101, end: 20090101
  2. MECLIZINE [Concomitant]
     Dosage: 25 MG, UNK
  3. METOPROLOL TARTRATE [Concomitant]
     Route: 048
  4. SINGULAIR [Concomitant]
     Route: 048
  5. EFFEXOR [Concomitant]
     Route: 048
  6. YASMIN [Suspect]
     Dosage: UNK
     Dates: start: 20070101, end: 20090101
  7. METRONIDAZOLE [Concomitant]
     Dosage: 500 MG, UNK
  8. AMBIEN CR [Concomitant]
     Dosage: 12.5 MG, UNK
  9. ALBUTEROL [Concomitant]

REACTIONS (5)
  - PAIN [None]
  - EMOTIONAL DISTRESS [None]
  - ANXIETY [None]
  - PULMONARY EMBOLISM [None]
  - THROMBOSIS [None]
